FAERS Safety Report 19958737 (Version 1)
Quarter: 2021Q4

REPORT INFORMATION
  Report Type: Spontaneous
  Country: US (occurrence: US)
  Receive Date: 20211015
  Receipt Date: 20211015
  Transmission Date: 20220304
  Serious: Yes (Other)
  Sender: FDA-Public Use
  Company Number: US-SLATE RUN PHARMACEUTICALS-21US000716

PATIENT

DRUGS (11)
  1. VANCOMYCIN HYDROCHLORIDE [Suspect]
     Active Substance: VANCOMYCIN HYDROCHLORIDE
     Indication: Evidence based treatment
     Dosage: UNK
     Dates: start: 2020, end: 2020
  2. VANCOMYCIN HYDROCHLORIDE [Suspect]
     Active Substance: VANCOMYCIN HYDROCHLORIDE
     Indication: Bacterial sepsis
     Dosage: UNK
     Dates: start: 2020, end: 2020
  3. ACYCLOVIR [Suspect]
     Active Substance: ACYCLOVIR
     Indication: Product used for unknown indication
     Dosage: UNK
     Dates: start: 2020, end: 2020
  4. HUMAN IMMUNOGLOBULIN G [Suspect]
     Active Substance: HUMAN IMMUNOGLOBULIN G
     Indication: Myocarditis
     Dosage: 2 GRAM PER KILOGRAM
     Route: 042
     Dates: start: 2020
  5. OXYGEN [Concomitant]
     Active Substance: OXYGEN
     Indication: Shock
     Dosage: UNK
     Dates: start: 2020
  6. UNSPECIFIED INGREDIENT [Concomitant]
     Active Substance: UNSPECIFIED INGREDIENT
     Indication: Shock
     Dosage: UNK
     Route: 042
     Dates: start: 2020
  7. CEFTRIAXONE [Concomitant]
     Active Substance: CEFTRIAXONE
     Indication: Evidence based treatment
     Dosage: UNK
     Dates: start: 2020
  8. SODIUM CHLORIDE [Concomitant]
     Active Substance: SODIUM CHLORIDE
     Indication: Shock
     Dosage: 3 BOLUSES
     Route: 042
     Dates: start: 2020
  9. NOREPINEPHRINE [Concomitant]
     Active Substance: NOREPINEPHRINE
     Indication: Shock
     Dosage: UNK
     Route: 042
     Dates: start: 2020
  10. HEPARIN [Concomitant]
     Active Substance: HEPARIN SODIUM
     Indication: Fibrin D dimer increased
     Dosage: UNK
     Route: 058
     Dates: start: 2020
  11. HEPARIN [Concomitant]
     Active Substance: HEPARIN SODIUM
     Indication: Blood fibrinogen increased

REACTIONS (10)
  - Myocarditis [Recovered/Resolved]
  - Nodal rhythm [Recovering/Resolving]
  - Rhythm idioventricular [Recovering/Resolving]
  - Left ventricular dysfunction [Unknown]
  - Ejection fraction decreased [Unknown]
  - Hypervolaemia [Recovered/Resolved]
  - Mycoplasma infection [Unknown]
  - Systemic inflammatory response syndrome [Unknown]
  - Therapy non-responder [Unknown]
  - Neutropenia [Recovering/Resolving]

NARRATIVE: CASE EVENT DATE: 20200101
